FAERS Safety Report 17423984 (Version 1)
Quarter: 2020Q1

REPORT INFORMATION
  Report Type: Spontaneous
  Country: US (occurrence: US)
  Receive Date: 20200217
  Receipt Date: 20200217
  Transmission Date: 20200409
  Serious: No
  Sender: FDA-Public Use
  Company Number: US-LUPIN PHARMACEUTICALS INC.-2020-00556

PATIENT
  Age: 43 Year
  Sex: Female
  Weight: 60.77 kg

DRUGS (1)
  1. DOXYCYCLINE CAPSULES USP100 MG [Suspect]
     Active Substance: DOXYCYCLINE
     Indication: SINUSITIS
     Dosage: UNK
     Route: 048
     Dates: start: 20200123

REACTIONS (5)
  - Diarrhoea [Not Recovered/Not Resolved]
  - Constipation [Not Recovered/Not Resolved]
  - Rash [Not Recovered/Not Resolved]
  - Faeces discoloured [Not Recovered/Not Resolved]
  - Flatulence [Not Recovered/Not Resolved]

NARRATIVE: CASE EVENT DATE: 20200123
